FAERS Safety Report 10641037 (Version 1)
Quarter: 2014Q4

REPORT INFORMATION
  Report Type: Spontaneous
  Country: US (occurrence: None)
  Receive Date: 20141208
  Receipt Date: 20141208
  Transmission Date: 20150529
  Serious: Yes (Hospitalization)
  Sender: FDA-Public Use
  Company Number: None

PATIENT
  Age: 52 Year
  Sex: Male
  Weight: 83.91 kg

DRUGS (1)
  1. BEVACIZUMAB(RHUMAB VEGF) [Suspect]
     Active Substance: BEVACIZUMAB
     Indication: GLIOBLASTOMA MULTIFORME

REACTIONS (3)
  - Disease progression [None]
  - Swelling [None]
  - Seizure [None]

NARRATIVE: CASE EVENT DATE: 20141122
